FAERS Safety Report 5526251-0 (Version None)
Quarter: 2007Q4

REPORT INFORMATION
  Report Type: 
  Country: None (occurrence: None)
  Receive Date: 20071127
  Receipt Date: 20071116
  Transmission Date: 20080405
  Serious: Yes (Other)
  Sender: FDA-Public Use
  Company Number: US-JNJFOC-20071106902

PATIENT
  Age: 2 Year
  Sex: Female
  Weight: 13.61 kg

DRUGS (1)
  1. CHILDRENS TYLENOL PLUS MULTI-SYMPTOM COLD GRAPE [Suspect]
     Indication: ACCIDENTAL EXPOSURE
     Dosage: 2-3 DOSING CUPS, ONCE TOTAL

REACTIONS (2)
  - ACCIDENTAL DRUG INTAKE BY CHILD [None]
  - ACCIDENTAL OVERDOSE [None]
